FAERS Safety Report 23265309 (Version 1)
Quarter: 2023Q4

REPORT INFORMATION
  Report Type: Spontaneous
  Country: US (occurrence: US)
  Receive Date: 20231206
  Receipt Date: 20231206
  Transmission Date: 20240110
  Serious: No
  Sender: FDA-Public Use
  Company Number: US-AUROBINDO-AUR-APL-2023-007231

PATIENT
  Age: 16 Year
  Sex: Male
  Weight: 92.9 kg

DRUGS (1)
  1. GUAIFENESIN [Suspect]
     Active Substance: GUAIFENESIN
     Indication: Cough
     Dosage: UNK UNK, ONCE A DAY
     Route: 065
     Dates: start: 20230209, end: 20230210

REACTIONS (1)
  - Extra dose administered [Unknown]
